FAERS Safety Report 6136044-1 (Version None)
Quarter: 2009Q1

REPORT INFORMATION
  Report Type: 
  Country: None (occurrence: None)
  Receive Date: 20090330
  Receipt Date: 20090323
  Transmission Date: 20090719
  Serious: Yes (Other)
  Sender: FDA-Public Use
  Company Number: US-ASTRAZENECA-2009UW07289

PATIENT
  Age: 64 Year
  Sex: Female

DRUGS (2)
  1. NEXIUM [Suspect]
     Route: 048
  2. CRESTOR [Suspect]
     Route: 048

REACTIONS (7)
  - ATRIOVENTRICULAR BLOCK [None]
  - BACK DISORDER [None]
  - FIBROMYALGIA [None]
  - HYPOREFLEXIA [None]
  - ILL-DEFINED DISORDER [None]
  - LABORATORY TEST ABNORMAL [None]
  - PAIN [None]
